FAERS Safety Report 7876474-0 (Version None)
Quarter: 2011Q4

REPORT INFORMATION
  Report Type: 
  Country: None (occurrence: None)
  Receive Date: 20111031
  Receipt Date: 20111020
  Transmission Date: 20120403
  Serious: Yes (Other)
  Sender: FDA-Public Use
  Company Number: US-ASTRAZENECA-2011SE44231

PATIENT
  Sex: Female

DRUGS (11)
  1. CYMBALTA [Concomitant]
     Indication: FIBROMYALGIA
  2. BONIVA [Concomitant]
     Indication: OSTEOPOROSIS
  3. SPIRIVA [Concomitant]
     Indication: CHRONIC OBSTRUCTIVE PULMONARY DISEASE
  4. VALPROIC ACID [Concomitant]
  5. SEROQUEL [Suspect]
     Indication: BIPOLAR DISORDER
     Route: 048
     Dates: start: 19960101
  6. LYRICA [Concomitant]
     Indication: FIBROMYALGIA
  7. TOPIRAMATE [Concomitant]
  8. TRAZODONE HCL [Concomitant]
  9. LITHIUM CITRATE [Concomitant]
  10. DIFLUCAN [Concomitant]
     Indication: CANDIDIASIS
  11. SEROQUEL [Suspect]
     Indication: SLEEP DISORDER
     Route: 048
     Dates: start: 19960101

REACTIONS (1)
  - HAEMORRHAGE [None]
